FAERS Safety Report 20701039 (Version 40)
Quarter: 2025Q4

REPORT INFORMATION
  Report Type: Report from Study
  Country: US (occurrence: US)
  Receive Date: 20220412
  Receipt Date: 20251219
  Transmission Date: 20260117
  Serious: Yes (Hospitalization, Other)
  Sender: TAKEDA
  Company Number: US-TAKEDA-2022TUS023374

PATIENT
  Age: 21 Year
  Sex: Female
  Weight: 58 kg

DRUGS (35)
  1. HUMAN IMMUNOGLOBULIN G [Suspect]
     Active Substance: HUMAN IMMUNOGLOBULIN G
     Indication: IgG deficiency
     Dosage: 14 GRAM, 1/WEEK
     Dates: start: 20180214
  2. HUMAN IMMUNOGLOBULIN G [Suspect]
     Active Substance: HUMAN IMMUNOGLOBULIN G
     Dosage: 14 GRAM, 1/WEEK
  3. HUMAN IMMUNOGLOBULIN G [Suspect]
     Active Substance: HUMAN IMMUNOGLOBULIN G
     Dosage: 14 GRAM, 1/WEEK
  4. HUMAN IMMUNOGLOBULIN G [Suspect]
     Active Substance: HUMAN IMMUNOGLOBULIN G
     Dosage: 14 GRAM, 1/WEEK
     Dates: start: 20180226
  5. HUMAN IMMUNOGLOBULIN G [Suspect]
     Active Substance: HUMAN IMMUNOGLOBULIN G
     Dosage: 21 GRAM, Q2WEEKS
     Dates: start: 20180705
  6. HUMAN IMMUNOGLOBULIN G [Suspect]
     Active Substance: HUMAN IMMUNOGLOBULIN G
     Dosage: 14 GRAM, 1/WEEK
     Dates: start: 20180708
  7. HUMAN IMMUNOGLOBULIN G [Suspect]
     Active Substance: HUMAN IMMUNOGLOBULIN G
     Dosage: 14 GRAM, Q2WEEKS
  8. ACETAMINOPHEN [Concomitant]
     Active Substance: ACETAMINOPHEN
     Dosage: UNK
  9. DEXAMETHASONE SODIUM PHOSPHATE [Concomitant]
     Active Substance: DEXAMETHASONE SODIUM PHOSPHATE
     Dosage: UNK
  10. LEVOCETIRIZINE DIHYDROCHLORIDE [Concomitant]
     Active Substance: LEVOCETIRIZINE DIHYDROCHLORIDE
     Dosage: UNK
  11. CLARITIN [Concomitant]
     Active Substance: LORATADINE
     Indication: Product used for unknown indication
     Dosage: UNK
  12. VITAMIN D [Concomitant]
     Active Substance: VITAMIN D NOS
     Dosage: UNK
  13. FOLIC ACID [Concomitant]
     Active Substance: FOLIC ACID
     Indication: Product used for unknown indication
     Dosage: UNK
  14. SINGULAIR [Concomitant]
     Active Substance: MONTELUKAST SODIUM
     Indication: Product used for unknown indication
     Dosage: UNK
  15. TRELEGY ELLIPTA [Concomitant]
     Active Substance: FLUTICASONE FUROATE\UMECLIDINIUM BROMIDE\VILANTEROL TRIFENATATE
     Indication: Product used for unknown indication
     Dosage: UNK
  16. ALBUTEROL SULFATE [Concomitant]
     Active Substance: ALBUTEROL SULFATE
     Indication: Product used for unknown indication
     Dosage: UNK
  17. XYZAL [Concomitant]
     Active Substance: LEVOCETIRIZINE DIHYDROCHLORIDE
     Indication: Product used for unknown indication
     Dosage: UNK
  18. SODIUM CHLORIDE [Concomitant]
     Active Substance: SODIUM CHLORIDE
     Indication: Product used for unknown indication
     Dosage: UNK
  19. EPIPEN [Concomitant]
     Active Substance: EPINEPHRINE
     Indication: Product used for unknown indication
     Dosage: UNK
  20. PROAIR HFA [Concomitant]
     Active Substance: ALBUTEROL SULFATE
     Indication: Product used for unknown indication
     Dosage: UNK
  21. GAMMAGARD [Concomitant]
     Active Substance: HUMAN IMMUNOGLOBULIN G
     Indication: Product used for unknown indication
     Dosage: UNK
  22. DIPHENHYDRAMINE HYDROCHLORIDE [Concomitant]
     Active Substance: DIPHENHYDRAMINE HYDROCHLORIDE
     Dosage: UNK
  23. Lmx [Concomitant]
     Indication: Product used for unknown indication
     Dosage: UNK
  24. ZENPEP [Concomitant]
     Active Substance: PANCRELIPASE AMYLASE\PANCRELIPASE LIPASE\PANCRELIPASE PROTEASE
     Indication: Product used for unknown indication
     Dosage: UNK
  25. LOVENOX [Concomitant]
     Active Substance: ENOXAPARIN SODIUM
     Dosage: UNK
  26. AZITHROMYCIN [Concomitant]
     Active Substance: AZITHROMYCIN
     Dosage: UNK
  27. EPINEPHRINE [Concomitant]
     Active Substance: EPINEPHRINE
     Indication: Product used for unknown indication
     Dosage: UNK
  28. VITAMIN D2 [Concomitant]
     Active Substance: ERGOCALCIFEROL
     Indication: Product used for unknown indication
     Dosage: UNK
  29. NAPROXEN [Concomitant]
     Active Substance: NAPROXEN
     Indication: Product used for unknown indication
     Dosage: UNK
  30. SYMBICORT [Concomitant]
     Active Substance: BUDESONIDE\FORMOTEROL FUMARATE DIHYDRATE
     Indication: Product used for unknown indication
     Dosage: UNK
  31. MONTELUKAST [Concomitant]
     Active Substance: MONTELUKAST
     Indication: Product used for unknown indication
     Dosage: UNK
  32. BENADRYL [Concomitant]
     Active Substance: DIPHENHYDRAMINE HYDROCHLORIDE
     Indication: Product used for unknown indication
     Dosage: UNK
  33. PREVACID [Concomitant]
     Active Substance: LANSOPRAZOLE
     Indication: Product used for unknown indication
     Dosage: UNK
  34. TEZSPIRE [Concomitant]
     Active Substance: TEZEPELUMAB-EKKO
     Dosage: UNK
  35. ALBUTEROL SULFATE [Concomitant]
     Active Substance: ALBUTEROL SULFATE
     Dosage: UNK

REACTIONS (38)
  - Pneumonia [Not Recovered/Not Resolved]
  - Sinusitis [Unknown]
  - Deep vein thrombosis [Unknown]
  - Pulmonary embolism [Unknown]
  - Sinus disorder [Not Recovered/Not Resolved]
  - Bronchitis [Unknown]
  - Chronic sinusitis [Unknown]
  - Sinusitis fungal [Not Recovered/Not Resolved]
  - Rhinovirus infection [Not Recovered/Not Resolved]
  - Bacterial infection [Unknown]
  - Fungal infection [Unknown]
  - Skin irritation [Unknown]
  - Infection [Not Recovered/Not Resolved]
  - Dysphagia [Unknown]
  - Weight abnormal [Unknown]
  - COVID-19 [Unknown]
  - Pain in jaw [Unknown]
  - Thoracic outlet syndrome [Unknown]
  - Illness [Not Recovered/Not Resolved]
  - Respiratory syncytial virus infection [Not Recovered/Not Resolved]
  - Obstruction [Unknown]
  - Nasopharyngitis [Unknown]
  - Viral infection [Unknown]
  - Inappropriate schedule of product administration [Unknown]
  - Product dose omission issue [Unknown]
  - Ear infection [Unknown]
  - Insurance issue [Unknown]
  - Upper respiratory tract infection [Not Recovered/Not Resolved]
  - Palpitations [Unknown]
  - Somnolence [Unknown]
  - Abdominal pain upper [Unknown]
  - Erythema [Unknown]
  - Dyspnoea [Unknown]
  - Headache [Unknown]
  - Fatigue [Unknown]
  - Nausea [Unknown]
  - Influenza [Not Recovered/Not Resolved]
  - General physical health deterioration [Unknown]
